FAERS Safety Report 17421507 (Version 1)
Quarter: 2020Q1

REPORT INFORMATION
  Report Type: Spontaneous
  Country: US (occurrence: US)
  Receive Date: 20200214
  Receipt Date: 20200214
  Transmission Date: 20200409
  Serious: Yes (Hospitalization)
  Sender: FDA-Public Use
  Company Number: US-EXELA PHARMA SCIENCES, LLC-2020EXL00004

PATIENT
  Age: 58 Year
  Sex: Female

DRUGS (1)
  1. VERAPAMIL HYDROCHLORIDE. [Suspect]
     Active Substance: VERAPAMIL HYDROCHLORIDE
     Indication: CEREBRAL VASOCONSTRICTION
     Dosage: 150 MG (APPROXIMATE TOTAL DOSE AFTER MULTIPLE DOSES)
     Route: 013

REACTIONS (4)
  - Hypotension [Unknown]
  - Pulmonary oedema [Unknown]
  - Hypoxia [Unknown]
  - Acute respiratory distress syndrome [Unknown]
